FAERS Safety Report 6527974-7 (Version None)
Quarter: 2009Q4

REPORT INFORMATION
  Report Type: 
  Country: None (occurrence: None)
  Receive Date: 20091229
  Receipt Date: 20091217
  Transmission Date: 20100525
  Serious: Yes (Other)
  Sender: FDA-Public Use
  Company Number: 2009SP042177

PATIENT
  Age: 65 Year
  Sex: Male

DRUGS (6)
  1. MIRTAZAPINE [Suspect]
     Indication: DEPRESSION
     Dosage: 15 MG;QD;PO
     Route: 048
     Dates: start: 20091029
  2. BROMAZEPAM [Concomitant]
  3. AMLODIPINE [Concomitant]
  4. BESILATE [Concomitant]
  5. ASPIRIN [Concomitant]
  6. DIGOXIN [Concomitant]

REACTIONS (4)
  - ASCITES [None]
  - ATRIAL FIBRILLATION [None]
  - CARDIAC HYPERTROPHY [None]
  - ELECTROCARDIOGRAM QT PROLONGED [None]
